FAERS Safety Report 18398416 (Version 1)
Quarter: 2020Q4

REPORT INFORMATION
  Report Type: Spontaneous
  Country: US (occurrence: US)
  Receive Date: 20201019
  Receipt Date: 20201019
  Transmission Date: 20210114
  Serious: Yes (Hospitalization)
  Sender: FDA-Public Use
  Company Number: None

PATIENT
  Age: 63 Year
  Sex: Female

DRUGS (10)
  1. TRAMADOL HCL [Concomitant]
     Active Substance: TRAMADOL HYDROCHLORIDE
  2. VITAMIN D3 [Concomitant]
     Active Substance: CHOLECALCIFEROL
  3. LETROZOLE. [Concomitant]
     Active Substance: LETROZOLE
  4. TYLENOL ARTH [Concomitant]
  5. CAPECITABINE 500MG TAB [Suspect]
     Active Substance: CAPECITABINE
     Indication: BREAST CANCER FEMALE
     Dosage: ?          OTHER DOSE:4 TABS (2 GRAMS);OTHER ROUTE:PO 14 D ON - 7 D OFF?
     Dates: start: 20200612
  6. AROMASIN [Concomitant]
     Active Substance: EXEMESTANE
  7. FAMOTIDINE. [Concomitant]
     Active Substance: FAMOTIDINE
  8. CALCIUM GLUC [Concomitant]
  9. MULTIVITAMINS WOMENS [Concomitant]
  10. OMEPRAZOLE. [Concomitant]
     Active Substance: OMEPRAZOLE

REACTIONS (1)
  - Colitis [None]

NARRATIVE: CASE EVENT DATE: 20200918
